FAERS Safety Report 16664298 (Version 1)
Quarter: 2019Q3

REPORT INFORMATION
  Report Type: Other
  Country: CN (occurrence: CN)
  Receive Date: 20190802
  Receipt Date: 20190802
  Transmission Date: 20191004
  Serious: Yes (Other)
  Sender: FDA-Public Use
  Company Number: CN-GE HEALTHCARE LIFE SCIENCES-2019CSU003933

PATIENT

DRUGS (3)
  1. VISIPAQUE [Suspect]
     Active Substance: IODIXANOL
     Indication: AORTIC DISSECTION
  2. VISIPAQUE [Suspect]
     Active Substance: IODIXANOL
     Indication: COMPUTERISED TOMOGRAM
     Dosage: 1.0 ML, SINGLE
     Route: 042
     Dates: start: 20190715, end: 20190715
  3. VISIPAQUE [Suspect]
     Active Substance: IODIXANOL
     Indication: SKIN TEST
     Dosage: 1 ML, SINGLE
     Route: 023
     Dates: start: 20190715, end: 20190715

REACTIONS (2)
  - Off label use [Unknown]
  - Angioedema [Recovering/Resolving]

NARRATIVE: CASE EVENT DATE: 20190715
